FAERS Safety Report 8543958-1 (Version None)
Quarter: 2012Q3

REPORT INFORMATION
  Report Type: 
  Country: None (occurrence: None)
  Receive Date: 20120727
  Receipt Date: 20120717
  Transmission Date: 20120928
  Serious: Yes (Other)
  Sender: FDA-Public Use
  Company Number: US-CELGENEUS-163-21880-12072073

PATIENT
  Age: 70 Year
  Sex: Male
  Weight: 106 kg

DRUGS (2)
  1. REVLIMID [Suspect]
     Dosage: 15 MILLIGRAM
     Route: 048
     Dates: start: 20120614, end: 20120614
  2. REVLIMID [Suspect]
     Indication: MULTIPLE MYELOMA
     Dosage: 15 MILLIGRAM
     Route: 048
     Dates: start: 20080102, end: 20120614

REACTIONS (2)
  - ACUTE MYELOID LEUKAEMIA [None]
  - NEUTROPHIL COUNT DECREASED [None]
